FAERS Safety Report 23931393 (Version 1)
Quarter: 2024Q2

REPORT INFORMATION
  Report Type: Spontaneous
  Country: AU (occurrence: AU)
  Receive Date: 20240603
  Receipt Date: 20240603
  Transmission Date: 20240716
  Serious: Yes (Death, Hospitalization, Other)
  Sender: FDA-Public Use
  Company Number: AU-ABBVIE-5779038

PATIENT
  Age: 86 Year
  Sex: Male

DRUGS (5)
  1. VENETOCLAX [Suspect]
     Active Substance: VENETOCLAX
     Indication: Acute myeloid leukaemia
     Dosage: CYCLE LENGTH CHANGED TO EVERY 6-8 WEEKS
     Route: 048
  2. VENETOCLAX [Suspect]
     Active Substance: VENETOCLAX
     Indication: Acute myeloid leukaemia
     Dosage: 400 MG, D1-7 OF 42 DAY CYCLES.
     Route: 048
  3. AZACITIDINE [Suspect]
     Active Substance: AZACITIDINE
     Indication: Acute myeloid leukaemia
     Dosage: CYCLE LENGTH CHANGED TO EVERY 6-8 WEEKS
     Route: 065
  4. AZACITIDINE [Suspect]
     Active Substance: AZACITIDINE
     Indication: Acute myeloid leukaemia
     Dosage: CYCLE 33?AZACITADINE 50MG/M2 D1-5
     Route: 065
  5. PIPERACILLIN SODIUM\TAZOBACTAM SODIUM [Concomitant]
     Active Substance: PIPERACILLIN SODIUM\TAZOBACTAM SODIUM
     Indication: Product used for unknown indication
     Route: 042

REACTIONS (12)
  - Acute myeloid leukaemia [Fatal]
  - Cytopenia [Unknown]
  - Tooth abscess [Unknown]
  - Pneumocystis jirovecii pneumonia [Unknown]
  - Pyrexia [Unknown]
  - Spinal stenosis [Unknown]
  - Febrile neutropenia [Recovered/Resolved]
  - Dyspnoea [Unknown]
  - Pallor [Unknown]
  - Anaemia [Unknown]
  - Back pain [Unknown]
  - Neuropathy peripheral [Unknown]
